FAERS Safety Report 4911779-4 (Version None)
Quarter: 2006Q1

REPORT INFORMATION
  Report Type: 
  Country: None (occurrence: None)
  Receive Date: 20060213
  Receipt Date: 20060213
  Transmission Date: 20060701
  Serious: Yes (Other)
  Sender: FDA-Public Use
  Company Number: None

PATIENT
  Age: 27 Year
  Sex: Male
  Weight: 74.8435 kg

DRUGS (2)
  1. TRAMADOL HCL [Suspect]
     Indication: FACIAL PAIN
     Dosage: 100MG   2     PO
     Route: 048
     Dates: start: 20050831, end: 20060212
  2. TRAMADOL HCL [Suspect]
     Indication: HEADACHE
     Dosage: 100MG   2     PO
     Route: 048
     Dates: start: 20050831, end: 20060212

REACTIONS (3)
  - DISORIENTATION [None]
  - DRUG DEPENDENCE [None]
  - DRUG WITHDRAWAL SYNDROME [None]
